FAERS Safety Report 5649168-X (Version None)
Quarter: 2008Q1

REPORT INFORMATION
  Report Type: 
  Country: None (occurrence: None)
  Receive Date: 20080229
  Receipt Date: 20080220
  Transmission Date: 20080703
  Serious: Yes (Hospitalization)
  Sender: FDA-Public Use
  Company Number: FABR-1000102

PATIENT
  Age: 30 Year
  Sex: Male
  Weight: 80 kg

DRUGS (1)
  1. FABRAZYME [Suspect]
     Indication: FABRY'S DISEASE
     Dosage: 80 MG, Q2W, INTRAVENOUS
     Route: 042
     Dates: start: 20070327

REACTIONS (1)
  - APPENDICECTOMY [None]
